FAERS Safety Report 5382099-1 (Version None)
Quarter: 2007Q3

REPORT INFORMATION
  Report Type: 
  Country: None (occurrence: None)
  Receive Date: 20070709
  Receipt Date: 20070628
  Transmission Date: 20080115
  Serious: Yes (Other)
  Sender: FDA-Public Use
  Company Number: GB-ASTRAZENECA-2007GB01346

PATIENT
  Age: 79 Year
  Sex: Female

DRUGS (6)
  1. OMEPRAZOLE [Suspect]
     Indication: DYSPEPSIA
     Route: 048
     Dates: start: 20070305
  2. SOLIFENACIN [Interacting]
     Indication: URINARY INCONTINENCE
     Route: 065
  3. ASPIRIN [Concomitant]
  4. ATORVASTATIN [Concomitant]
  5. BENDROFLUMETHIAZIDE [Concomitant]
  6. VALSARTAN [Concomitant]

REACTIONS (2)
  - DRUG INTERACTION [None]
  - URINARY INCONTINENCE [None]
